FAERS Safety Report 9455503 (Version 3)
Quarter: 2014Q3

REPORT INFORMATION
  Report Type: Spontaneous
  Country: CA (occurrence: CA)
  Receive Date: 20130813
  Receipt Date: 20140731
  Transmission Date: 20150326
  Serious: Yes (Death, Hospitalization, Other)
  Sender: FDA-Public Use
  Company Number: CA-AMGEN-CANSP2013055575

PATIENT
  Age: 83 Year
  Sex: Female

DRUGS (2)
  1. INSULIN                            /00646001/ [Concomitant]
     Active Substance: INSULIN NOS
     Indication: DIABETES MELLITUS
     Dosage: UNK UNK, QID
  2. PROLIA [Suspect]
     Active Substance: DENOSUMAB
     Indication: OSTEOPOROSIS POSTMENOPAUSAL
     Dosage: 60 MG, Q6MO
     Route: 058
     Dates: start: 20120531, end: 201403

REACTIONS (9)
  - Muscle spasms [Unknown]
  - Lower limb fracture [Recovered/Resolved]
  - Abnormal behaviour [Unknown]
  - Blood insulin abnormal [Unknown]
  - Diabetes mellitus inadequate control [Unknown]
  - Pneumonia [Unknown]
  - Death [Fatal]
  - Dyspnoea [Unknown]
  - Hyperhidrosis [Unknown]

NARRATIVE: CASE EVENT DATE: 2013
